FAERS Safety Report 23944647 (Version 3)
Quarter: 2024Q3

REPORT INFORMATION
  Report Type: Report from Study
  Country: CH (occurrence: CH)
  Receive Date: 20240606
  Receipt Date: 20240715
  Transmission Date: 20241017
  Serious: Yes (Death)
  Sender: CSL BEHRING
  Company Number: CH-BEH-2024173150

PATIENT
  Sex: Female

DRUGS (1)
  1. HIZENTRA [Suspect]
     Active Substance: HUMAN IMMUNOGLOBULIN G
     Indication: Primary immunodeficiency syndrome
     Dosage: UNK
     Route: 058
     Dates: start: 20220512, end: 20240523

REACTIONS (1)
  - Death [Fatal]

NARRATIVE: CASE EVENT DATE: 20240523
